FAERS Safety Report 10592647 (Version 1)
Quarter: 2014Q4

REPORT INFORMATION
  Report Type: Spontaneous
  Country: US (occurrence: None)
  Receive Date: 20141117
  Receipt Date: 20141117
  Transmission Date: 20150529
  Serious: Yes (Other)
  Sender: FDA-Public Use
  Company Number: 2014SA147850

PATIENT
  Age: 69 Year
  Sex: Female

DRUGS (1)
  1. KYNAMRO [Suspect]
     Active Substance: MIPOMERSEN SODIUM
     Indication: TYPE IIA HYPERLIPIDAEMIA
     Route: 058
     Dates: start: 20141021

REACTIONS (9)
  - Ageusia [None]
  - Heart rate increased [None]
  - Injection site swelling [None]
  - Back pain [None]
  - Influenza like illness [None]
  - Urinary tract infection [None]
  - Blood pressure increased [None]
  - Injection site discolouration [None]
  - Dry mouth [None]

NARRATIVE: CASE EVENT DATE: 201410
